FAERS Safety Report 6790800-5 (Version None)
Quarter: 2010Q2

REPORT INFORMATION
  Report Type: 
  Country: None (occurrence: None)
  Receive Date: 20100624
  Receipt Date: 20100611
  Transmission Date: 20101027
  Serious: No
  Sender: FDA-Public Use
  Company Number: US-ELI_LILLY_AND_COMPANY-US201005006153

PATIENT
  Age: 30 Year
  Sex: Female
  Weight: 91.156 kg

DRUGS (6)
  1. CYMBALTA [Suspect]
     Indication: DEPRESSION
     Dosage: 30 MG, EACH MORNING
     Dates: start: 20080710, end: 20081114
  2. CYMBALTA [Suspect]
     Dosage: 60 MG, EACH EVENING
     Dates: start: 20080710, end: 20081114
  3. BUSPAR [Concomitant]
     Indication: ANXIETY
  4. TRAZODONE HYDROCHLORIDE [Concomitant]
     Indication: DEPRESSION
  5. VALTREX [Concomitant]
     Indication: HERPES SIMPLEX
  6. MARIJUANA [Concomitant]

REACTIONS (1)
  - LIVER FUNCTION TEST ABNORMAL [None]
